FAERS Safety Report 17444764 (Version 1)
Quarter: 2020Q1

REPORT INFORMATION
  Report Type: Spontaneous
  Country: DE (occurrence: DE)
  Receive Date: 20200221
  Receipt Date: 20200221
  Transmission Date: 20200409
  Serious: Yes (Hospitalization)
  Sender: FDA-Public Use
  Company Number: DE-TEVA-2020-DE-1188787

PATIENT
  Age: 79 Year
  Sex: Female

DRUGS (9)
  1. ZOLEDRONSAURE [Concomitant]
     Dosage: 4 MG, EVERY 4 WEEKS
  2. REVLIMID [Suspect]
     Active Substance: LENALIDOMIDE
     Dosage: 10 MG, 1-0-0-0
  3. ACETYLSALICYLSAURE [Suspect]
     Active Substance: ASPIRIN
     Dosage: 100 MG, 1-0-0-0
  4. DICLOFENAC [Suspect]
     Active Substance: DICLOFENAC
     Dosage: 75 MG, 1-0-1-0
     Route: 065
  5. DEKRISTOL 20000I.E. [Concomitant]
     Dosage: 20,000 IU, SUNDAYS
  6. CLOPIDOGREL [Concomitant]
     Active Substance: CLOPIDOGREL BISULFATE
     Dosage: 75 MG, 1-0-0-0
  7. DILTIAZEM. [Concomitant]
     Active Substance: DILTIAZEM
     Dosage: 90 MG, 0.5-0-0.5-0
  8. FLECADURA [Concomitant]
     Dosage: 100 MG, 1-0-1-0
  9. METAMIZOL [Concomitant]
     Active Substance: METAMIZOLE SODIUM
     Dosage: 40 GTT, IF NECESSARY

REACTIONS (4)
  - Skin irritation [Unknown]
  - Wound [Unknown]
  - Wound complication [Unknown]
  - Wound necrosis [Unknown]
